FAERS Safety Report 20973246 (Version 5)
Quarter: 2022Q4

REPORT INFORMATION
  Report Type: Report from Study
  Country: BE (occurrence: BE)
  Receive Date: 20220617
  Receipt Date: 20221107
  Transmission Date: 20230112
  Serious: Yes (Death, Life-Threatening, Hospitalization)
  Sender: FDA-Public Use
  Company Number: BE-JNJFOC-20220616010

PATIENT
  Age: 75 Year
  Sex: Female
  Weight: 60.5 kg

DRUGS (20)
  1. CILTACABTAGENE AUTOLEUCEL [Suspect]
     Active Substance: CILTACABTAGENE AUTOLEUCEL
     Indication: Plasma cell myeloma
     Route: 042
     Dates: start: 20220106, end: 20220106
  2. CYCLOPHOSPHAMIDE [Concomitant]
     Active Substance: CYCLOPHOSPHAMIDE
     Indication: Plasma cell myeloma
     Route: 042
     Dates: start: 20211229, end: 20211231
  3. FLUDARABINE [Concomitant]
     Active Substance: FLUDARABINE PHOSPHATE
     Indication: Plasma cell myeloma
     Route: 042
     Dates: start: 20211229, end: 20211231
  4. FEMARA [Concomitant]
     Active Substance: LETROZOLE
     Indication: Hormone level abnormal
     Route: 048
     Dates: start: 20190301
  5. OMEPRAZOLE [Concomitant]
     Active Substance: OMEPRAZOLE
     Indication: Gastrointestinal disorder therapy
     Route: 048
     Dates: start: 20211008
  6. CHOLECALCIFEROL [Concomitant]
     Active Substance: CHOLECALCIFEROL
     Indication: Osteoporosis prophylaxis
     Route: 048
     Dates: start: 20211109
  7. ARANESP [Concomitant]
     Active Substance: DARBEPOETIN ALFA
     Indication: Anaemia
     Route: 058
     Dates: start: 20211207
  8. EDOXABAN TOSYLATE [Concomitant]
     Active Substance: EDOXABAN TOSYLATE
     Indication: Thrombosis prophylaxis
     Route: 048
     Dates: start: 20211229
  9. BISOPROLOL [Concomitant]
     Active Substance: BISOPROLOL
     Indication: Atrial fibrillation
     Route: 048
     Dates: start: 20220117
  10. VAGIFEM [Concomitant]
     Active Substance: ESTRADIOL
     Indication: Atrophic vulvovaginitis
     Route: 050
     Dates: start: 20220125
  11. MIRABEGRON [Concomitant]
     Active Substance: MIRABEGRON
     Indication: Atrophic vulvovaginitis
     Dosage: BETMIGA
     Route: 048
     Dates: start: 20220125
  12. IQYMUNE [Concomitant]
     Indication: Hypogammaglobulinaemia
     Dosage: ALSO REPORTED THAT SUBJECT IS RECEIVING IVIG SINCE MARCH 2022
     Route: 042
     Dates: start: 20220214
  13. ACYCLOVIR [Concomitant]
     Active Substance: ACYCLOVIR
     Indication: Prophylaxis
     Route: 048
  14. ASPIRIN [Concomitant]
     Active Substance: ASPIRIN
     Indication: Thrombosis prophylaxis
     Route: 048
  15. BACTRIM [Concomitant]
     Active Substance: SULFAMETHOXAZOLE\TRIMETHOPRIM
     Indication: Antifungal prophylaxis
     Dosage: 160/800
     Route: 048
  16. STEOVIT FORTE [Concomitant]
     Indication: Osteoporosis prophylaxis
     Dosage: 1000/880
     Route: 048
  17. VAXZEVRIA [Concomitant]
     Active Substance: AZD-1222
     Indication: COVID-19 prophylaxis
     Dates: start: 20210316, end: 20210316
  18. VAXZEVRIA [Concomitant]
     Active Substance: AZD-1222
     Dates: start: 20210608, end: 20210608
  19. COMIRNATY [Concomitant]
     Active Substance: TOZINAMERAN
     Indication: COVID-19 prophylaxis
     Dates: start: 20210927, end: 20210927
  20. AUGMENTIN [Concomitant]
     Active Substance: AMOXICILLIN\CLAVULANATE POTASSIUM
     Indication: Streptococcal bronchitis
     Dosage: 875/125
     Route: 048
     Dates: start: 20220609, end: 20220614

REACTIONS (3)
  - COVID-19 [Recovering/Resolving]
  - Urosepsis [Not Recovered/Not Resolved]
  - Haemorrhage intracranial [Fatal]

NARRATIVE: CASE EVENT DATE: 20220606
